FAERS Safety Report 10886496 (Version 1)
Quarter: 2015Q1

REPORT INFORMATION
  Report Type: Spontaneous
  Country: US (occurrence: None)
  Receive Date: 20150227
  Receipt Date: 20150227
  Transmission Date: 20150721
  Serious: Yes (Life-Threatening)
  Sender: FDA-Public Use
  Company Number: None

PATIENT
  Age: 58 Year
  Sex: Female
  Weight: 73.4 kg

DRUGS (1)
  1. BUPROPION [Suspect]
     Active Substance: BUPROPION
     Indication: DEPRESSION
     Route: 048
     Dates: start: 20140417, end: 20140725

REACTIONS (6)
  - Tension [None]
  - Anxiety [None]
  - Dry mouth [None]
  - Feeling jittery [None]
  - Hallucination, auditory [None]
  - Suicidal ideation [None]

NARRATIVE: CASE EVENT DATE: 20140722
